FAERS Safety Report 23950878 (Version 1)
Quarter: 2024Q2

REPORT INFORMATION
  Report Type: Spontaneous
  Country: US (occurrence: US)
  Receive Date: 20240607
  Receipt Date: 20240607
  Transmission Date: 20240716
  Serious: Yes (Other)
  Sender: FDA-Public Use
  Company Number: US-NOVOPROD-1231174

PATIENT
  Sex: Female

DRUGS (3)
  1. NOVOLIN 70/30 [Suspect]
     Active Substance: INSULIN HUMAN
     Indication: Type 2 diabetes mellitus
     Dosage: 15 IU, QD
     Route: 058
  2. NOVOLIN 70/30 [Suspect]
     Active Substance: INSULIN HUMAN
     Dosage: UNK
  3. NOVOLIN 70/30 [Suspect]
     Active Substance: INSULIN HUMAN
     Dosage: UNK

REACTIONS (1)
  - Chronic kidney disease [Unknown]
